FAERS Safety Report 5378210-9 (Version None)
Quarter: 2007Q3

REPORT INFORMATION
  Report Type: 
  Country: None (occurrence: None)
  Receive Date: 20070705
  Receipt Date: 20070627
  Transmission Date: 20080115
  Serious: Yes (Other)
  Sender: FDA-Public Use
  Company Number: AU-JNJFOC-20070501323

PATIENT
  Sex: Male

DRUGS (1)
  1. RISPERDAL [Suspect]
     Indication: SCHIZOPHRENIA
     Route: 048

REACTIONS (5)
  - AFFECTIVE DISORDER [None]
  - EUPHORIC MOOD [None]
  - HALLUCINATION, VISUAL [None]
  - RHEUMATOID ARTHRITIS [None]
  - WEIGHT INCREASED [None]
